FAERS Safety Report 23849492 (Version 1)
Quarter: 2024Q2

REPORT INFORMATION
  Report Type: Spontaneous
  Country: US (occurrence: None)
  Receive Date: 20240512
  Receipt Date: 20240512
  Transmission Date: 20240716
  Serious: Yes (Hospitalization)
  Sender: FDA-Public Use
  Company Number: None

PATIENT
  Age: 38 Year
  Sex: Male
  Weight: 83 kg

DRUGS (4)
  1. OXCARBAZEPINE [Suspect]
     Active Substance: OXCARBAZEPINE
     Indication: Impulsive behaviour
     Dosage: 450 MG EVERY DAY PO?
     Route: 048
     Dates: start: 20191026, end: 20200619
  2. OXCARBAZEPINE [Suspect]
     Active Substance: OXCARBAZEPINE
     Indication: Aggression
  3. GABAPENTIN [Suspect]
     Active Substance: GABAPENTIN
  4. MELOXICAM [Suspect]
     Active Substance: MELOXICAM

REACTIONS (5)
  - Alcohol abuse [None]
  - Polydipsia [None]
  - Blood osmolarity decreased [None]
  - Hyponatraemia [None]
  - Inappropriate antidiuretic hormone secretion [None]

NARRATIVE: CASE EVENT DATE: 20200619
